FAERS Safety Report 4964963-8 (Version None)
Quarter: 2006Q2

REPORT INFORMATION
  Report Type: 
  Country: None (occurrence: None)
  Receive Date: 20060403
  Receipt Date: 20060320
  Transmission Date: 20061013
  Serious: Yes (Other)
  Sender: FDA-Public Use
  Company Number: 2006RR-01833

PATIENT
  Age: 36 Year
  Sex: Female

DRUGS (1)
  1. OFLOXACIN [Suspect]
     Indication: OVARIAN CYST
     Dosage: 200 MG, QD, ORAL
     Route: 048
     Dates: start: 20060117, end: 20060117

REACTIONS (4)
  - DYSPHONIA [None]
  - FEELING HOT [None]
  - HYPERSENSITIVITY [None]
  - TREMOR [None]
